FAERS Safety Report 5910746-1 (Version None)
Quarter: 2008Q4

REPORT INFORMATION
  Report Type: 
  Country: None (occurrence: None)
  Receive Date: 20081007
  Receipt Date: 20080410
  Transmission Date: 20090506
  Serious: Yes (Other)
  Sender: FDA-Public Use
  Company Number: US-ASTRAZENECA-2008UW07429

PATIENT
  Age: 59 Year
  Sex: Female

DRUGS (2)
  1. ARIMIDEX [Suspect]
     Indication: BREAST CANCER
     Route: 048
     Dates: start: 20060301, end: 20070701
  2. ABRAXANE [Concomitant]
     Indication: CHEMOTHERAPY

REACTIONS (1)
  - METASTASES TO LIVER [None]
